FAERS Safety Report 24555877 (Version 1)
Quarter: 2024Q4

REPORT INFORMATION
  Report Type: Spontaneous
  Country: US (occurrence: US)
  Receive Date: 20241028
  Receipt Date: 20241028
  Transmission Date: 20250114
  Serious: Yes (Hospitalization)
  Sender: PFIZER
  Company Number: US-PFIZER INC-202400286867

PATIENT

DRUGS (1)
  1. LITFULO [Suspect]
     Active Substance: RITLECITINIB TOSYLATE
     Dosage: UNK

REACTIONS (3)
  - Hypoaesthesia [Unknown]
  - Nail discolouration [Unknown]
  - Onychomycosis [Unknown]
